FAERS Safety Report 12933737 (Version 3)
Quarter: 2016Q4

REPORT INFORMATION
  Report Type: Spontaneous
  Country: JP (occurrence: JP)
  Receive Date: 20161111
  Receipt Date: 20161202
  Transmission Date: 20170207
  Serious: Yes (Other)
  Sender: FDA-Public Use
  Company Number: JP-ABBVIE-16P-087-1778866-00

PATIENT
  Age: 47 Year
  Sex: Female
  Weight: 44.6 kg

DRUGS (2)
  1. LEUPLIN SR [Suspect]
     Active Substance: LEUPROLIDE ACETATE
     Indication: BREAST CANCER FEMALE
     Dosage: 11.25 MG, Q3MONTHS
     Route: 058
     Dates: start: 20150801
  2. TAMOXIFEN CITRATE. [Suspect]
     Active Substance: TAMOXIFEN CITRATE
     Indication: BREAST CANCER
     Dosage: UNK
     Route: 048
     Dates: start: 20150801

REACTIONS (13)
  - Hyperhidrosis [Unknown]
  - Cardiovascular disorder [Recovering/Resolving]
  - Abdominal discomfort [Recovering/Resolving]
  - Pollakiuria [Unknown]
  - Disturbance in attention [Unknown]
  - Dry skin [Unknown]
  - Hot flush [Recovering/Resolving]
  - Insomnia [Not Recovered/Not Resolved]
  - Malaise [Recovering/Resolving]
  - Vulvovaginal pain [Recovered/Resolved]
  - Hypoaesthesia oral [Recovering/Resolving]
  - Musculoskeletal stiffness [Unknown]
  - Feeling cold [Unknown]

NARRATIVE: CASE EVENT DATE: 20150818
